FAERS Safety Report 12169044 (Version 1)
Quarter: 2016Q1

REPORT INFORMATION
  Report Type: Spontaneous
  Country: PL (occurrence: PL)
  Receive Date: 20160310
  Receipt Date: 20160310
  Transmission Date: 20160526
  Serious: Yes (Hospitalization, Other)
  Sender: FDA-Public Use
  Company Number: PL-WATSON-2016-04974

PATIENT
  Age: 17 Year
  Sex: Female

DRUGS (1)
  1. KETOPROFEN (UNKNOWN) [Suspect]
     Active Substance: KETOPROFEN
     Indication: PRODUCT USED FOR UNKNOWN INDICATION
     Dosage: 500 MG, TOTAL, INGESTED 5 TABLETS OF 100 MG
     Route: 048

REACTIONS (1)
  - Renal injury [Recovering/Resolving]
